FAERS Safety Report 7627207-4 (Version None)
Quarter: 2011Q3

REPORT INFORMATION
  Report Type: 
  Country: None (occurrence: None)
  Receive Date: 20110721
  Receipt Date: 20110712
  Transmission Date: 20111222
  Serious: Yes (Hospitalization)
  Sender: FDA-Public Use
  Company Number: BR-US-EMD SERONO, INC.-7070557

PATIENT
  Sex: Male

DRUGS (3)
  1. REBIF [Suspect]
     Indication: RELAPSING-REMITTING MULTIPLE SCLEROSIS
     Dates: start: 20071210
  2. ENALAPRIL MALEATE [Concomitant]
  3. PHENYTOIN [Concomitant]

REACTIONS (3)
  - VENOUS OCCLUSION [None]
  - MEMORY IMPAIRMENT [None]
  - HYPERTENSION [None]
